FAERS Safety Report 23845131 (Version 1)
Quarter: 2024Q2

REPORT INFORMATION
  Report Type: Spontaneous
  Country: US (occurrence: US)
  Receive Date: 20240511
  Receipt Date: 20240511
  Transmission Date: 20240716
  Serious: No
  Sender: FDA-Public Use
  Company Number: US-CIPLA LTD.-2024US01202

PATIENT

DRUGS (1)
  1. ALBUTEROL [Suspect]
     Active Substance: ALBUTEROL
     Indication: Asthma
     Dosage: DOSE (2 PUFFS- 180 MCG), FREQUENCY (EVERY 4 HOURS AS NEEDED))
     Route: 065

REACTIONS (3)
  - Asthma [Not Recovered/Not Resolved]
  - Device malfunction [Unknown]
  - Device delivery system issue [Unknown]
